FAERS Safety Report 7600761-4 (Version None)
Quarter: 2011Q3

REPORT INFORMATION
  Report Type: 
  Country: None (occurrence: None)
  Receive Date: 20110711
  Receipt Date: 20110627
  Transmission Date: 20111222
  Serious: Yes (Hospitalization, Other)
  Sender: FDA-Public Use
  Company Number: IT-GENENTECH-321031

PATIENT

DRUGS (5)
  1. RITUXIMAB [Suspect]
     Indication: NON-HODGKIN'S LYMPHOMA
     Dosage: UNK
     Route: 065
  2. DOXORUBICIN HCL [Suspect]
     Indication: NON-HODGKIN'S LYMPHOMA
     Dosage: UNK
     Route: 065
  3. VINCRISTINE [Suspect]
     Indication: NON-HODGKIN'S LYMPHOMA
     Dosage: UNK
     Route: 065
  4. CYCLOPHOSPHAMIDE [Suspect]
     Indication: NON-HODGKIN'S LYMPHOMA
     Dosage: UNK
     Route: 065
  5. PREDNISOLONE [Suspect]
     Indication: NON-HODGKIN'S LYMPHOMA
     Dosage: UNK
     Route: 065

REACTIONS (38)
  - NEUROPATHY PERIPHERAL [None]
  - RENAL FAILURE [None]
  - ANAEMIA [None]
  - PULMONARY EMBOLISM [None]
  - INTESTINAL ISCHAEMIA [None]
  - THROMBOCYTOPENIA [None]
  - ABSCESS [None]
  - CARDIAC FAILURE CONGESTIVE [None]
  - PNEUMONIA [None]
  - AMAUROSIS FUGAX [None]
  - GASTROINTESTINAL PERFORATION [None]
  - SEPSIS [None]
  - DEHYDRATION [None]
  - PANCREATITIS [None]
  - RASH [None]
  - LACRIMATION INCREASED [None]
  - PYREXIA [None]
  - FATIGUE [None]
  - OEDEMA [None]
  - DEEP VEIN THROMBOSIS [None]
  - PATHOLOGICAL FRACTURE [None]
  - ARRHYTHMIA [None]
  - DIARRHOEA [None]
  - HEPATITIS [None]
  - CONVULSION [None]
  - NAUSEA [None]
  - GASTROINTESTINAL OBSTRUCTION [None]
  - NEUTROPENIA [None]
  - MUCOSAL INFLAMMATION [None]
  - CONSTIPATION [None]
  - HYPERGLYCAEMIA [None]
  - FEBRILE NEUTROPENIA [None]
  - HAEMORRHAGE [None]
  - PAIN [None]
  - DYSPHAGIA [None]
  - INAPPROPRIATE ANTIDIURETIC HORMONE SECRETION [None]
  - VOMITING [None]
  - FISTULA [None]
